FAERS Safety Report 11021559 (Version 1)
Quarter: 2015Q2

REPORT INFORMATION
  Report Type: Spontaneous
  Country: CH (occurrence: CH)
  Receive Date: 20150413
  Receipt Date: 20150413
  Transmission Date: 20150821
  Serious: Yes (Other)
  Sender: FDA-Public Use
  Company Number: CH-TEVA-554306ISR

PATIENT
  Age: 83 Year
  Sex: Female

DRUGS (1)
  1. PRAVASTATIN-MEPHA [Suspect]
     Active Substance: PRAVASTATIN\PRAVASTATIN SODIUM
     Dosage: CONTINUING, AS OF 08-APR-2015, THE PATIENT HAD USED 2 ORIGINAL PACKS (OPS)
     Route: 065

REACTIONS (4)
  - Loss of consciousness [Recovered/Resolved]
  - Malaise [Unknown]
  - Product formulation issue [Unknown]
  - Pruritus [Unknown]
